FAERS Safety Report 13715892 (Version 3)
Quarter: 2019Q3

REPORT INFORMATION
  Report Type: Spontaneous
  Country: US (occurrence: US)
  Receive Date: 20170705
  Receipt Date: 20190812
  Transmission Date: 20191004
  Serious: Yes (Other)
  Sender: FDA-Public Use
  Company Number: US-ASTRAZENECA-2017SE66795

PATIENT
  Age: 17714 Day
  Sex: Female
  Weight: 82.5 kg

DRUGS (39)
  1. NEXIUM [Suspect]
     Active Substance: ESOMEPRAZOLE MAGNESIUM
     Indication: HYPERCHLORHYDRIA
     Route: 048
     Dates: start: 2008, end: 2015
  2. NEXIUM [Suspect]
     Active Substance: ESOMEPRAZOLE MAGNESIUM
     Indication: HYPERCHLORHYDRIA
     Route: 048
     Dates: start: 20080828
  3. SODIUM BICARBONATE. [Suspect]
     Active Substance: SODIUM BICARBONATE
     Indication: HYPERCHLORHYDRIA
     Route: 048
     Dates: start: 20130130
  4. AZITHROMYCIN ANHYDROUS. [Concomitant]
     Active Substance: AZITHROMYCIN ANHYDROUS
  5. VERAMYST [Concomitant]
     Active Substance: FLUTICASONE FUROATE
  6. MUCINEX [Concomitant]
     Active Substance: GUAIFENESIN
  7. CIPROFLOXACIN. [Concomitant]
     Active Substance: CIPROFLOXACIN
  8. PENICILLIN VK [Concomitant]
     Active Substance: PENICILLIN V POTASSIUM
  9. AMOXICILLIN. [Concomitant]
     Active Substance: AMOXICILLIN
  10. HCTZ [Concomitant]
     Active Substance: HYDROCHLOROTHIAZIDE
  11. SKELAXIN [Concomitant]
     Active Substance: METAXALONE
  12. PREDNISONE. [Concomitant]
     Active Substance: PREDNISONE
  13. LISINOPRIL. [Concomitant]
     Active Substance: LISINOPRIL
  14. FERROUS SULFATE. [Concomitant]
     Active Substance: FERROUS SULFATE
  15. NEXIUM [Suspect]
     Active Substance: ESOMEPRAZOLE MAGNESIUM
     Indication: DYSPEPSIA
     Route: 048
     Dates: start: 20080828
  16. FUROSEMIDE. [Concomitant]
     Active Substance: FUROSEMIDE
  17. NEXIUM [Suspect]
     Active Substance: ESOMEPRAZOLE MAGNESIUM
     Indication: HYPERCHLORHYDRIA
     Route: 048
     Dates: start: 2012, end: 2016
  18. PANTOPRAZOLE [Suspect]
     Active Substance: PANTOPRAZOLE
     Indication: HYPERCHLORHYDRIA
     Route: 048
     Dates: start: 20140424
  19. METRONIDAZOL [Concomitant]
     Active Substance: METRONIDAZOLE
  20. NOVOLOG [Concomitant]
     Active Substance: INSULIN ASPART
  21. TUSSIONEX PENNKINETIC [Concomitant]
     Active Substance: CHLORPHENIRAMINE\HYDROCODONE
  22. NOVOLIN [Concomitant]
     Active Substance: INSULIN HUMAN
  23. NEXIUM [Suspect]
     Active Substance: ESOMEPRAZOLE MAGNESIUM
     Indication: DYSPEPSIA
     Route: 048
     Dates: start: 2008, end: 2015
  24. OMEPRAZOLE. [Suspect]
     Active Substance: OMEPRAZOLE
     Indication: HYPERCHLORHYDRIA
     Route: 065
     Dates: start: 2008, end: 2015
  25. PANTOPRAZOLE [Suspect]
     Active Substance: PANTOPRAZOLE
     Indication: HYPERCHLORHYDRIA
     Route: 048
     Dates: start: 2008, end: 2015
  26. SODIUM BICARBONATE. [Suspect]
     Active Substance: SODIUM BICARBONATE
     Indication: HYPERCHLORHYDRIA
     Route: 048
     Dates: start: 2008, end: 2015
  27. LEVAQUIN [Concomitant]
     Active Substance: LEVOFLOXACIN
  28. GABAPENTIN. [Concomitant]
     Active Substance: GABAPENTIN
  29. TERCONAZOLE. [Concomitant]
     Active Substance: TERCONAZOLE
  30. OMEPRAZOLE. [Suspect]
     Active Substance: OMEPRAZOLE
     Indication: HYPERCHLORHYDRIA
     Route: 048
     Dates: start: 20121010
  31. HYDROCO/APAP [Concomitant]
     Active Substance: ACETAMINOPHEN\HYDROCODONE
  32. IBUPROFEN. [Concomitant]
     Active Substance: IBUPROFEN
  33. ALPRAZOLAM. [Concomitant]
     Active Substance: ALPRAZOLAM
  34. DICLOXACILLIN [Concomitant]
     Active Substance: DICLOXACILLIN
  35. METOPROLOL TARTRATE. [Concomitant]
     Active Substance: METOPROLOL TARTRATE
  36. ATORVASTATIN [Concomitant]
     Active Substance: ATORVASTATIN
  37. NEXIUM [Suspect]
     Active Substance: ESOMEPRAZOLE MAGNESIUM
     Indication: DYSPEPSIA
     Route: 048
     Dates: start: 2012, end: 2016
  38. DIPHEN/ATROP [Concomitant]
     Active Substance: ATROPINE SULFATE\DIPHENOXYLATE
  39. ALBUTEROL. [Concomitant]
     Active Substance: ALBUTEROL

REACTIONS (7)
  - Nephropathy [Not Recovered/Not Resolved]
  - Chronic kidney disease [Unknown]
  - Tubulointerstitial nephritis [Unknown]
  - Acute kidney injury [Unknown]
  - End stage renal disease [Unknown]
  - Renal failure [Not Recovered/Not Resolved]
  - Diabetic nephropathy [Unknown]

NARRATIVE: CASE EVENT DATE: 20120209
